FAERS Safety Report 26126142 (Version 2)
Quarter: 2025Q4

REPORT INFORMATION
  Report Type: Report from Study
  Country: CA (occurrence: CA)
  Receive Date: 20251205
  Receipt Date: 20251225
  Transmission Date: 20260118
  Serious: Yes (Hospitalization, Other)
  Sender: ROCHE
  Company Number: CA-ROCHE-10000428031

PATIENT
  Age: 59 Year
  Sex: Female

DRUGS (3)
  1. ACTEMRA ACTPEN [Suspect]
     Active Substance: TOCILIZUMAB
     Indication: Rheumatoid arthritis
     Dosage: DRUG DOSE FIRST ADMINISTERED IS 162 MG MILLIGRAM(S)
     Route: 058
  2. PRAMIPEXOLE [Concomitant]
     Active Substance: PRAMIPEXOLE
  3. PREDNISONE [Concomitant]
     Active Substance: PREDNISONE

REACTIONS (12)
  - Hernia [Unknown]
  - Pain [Recovering/Resolving]
  - Rib fracture [Unknown]
  - Gastrointestinal disorder [Unknown]
  - Septic shock [Unknown]
  - Hypotension [Unknown]
  - Impaired healing [Not Recovered/Not Resolved]
  - Device leakage [Unknown]
  - Discharge [Unknown]
  - Wound [Unknown]
  - Post procedural complication [Unknown]
  - Hallucination [Unknown]

NARRATIVE: CASE EVENT DATE: 20250101
